FAERS Safety Report 6379023-1 (Version None)
Quarter: 2009Q3

REPORT INFORMATION
  Report Type: 
  Country: None (occurrence: None)
  Receive Date: 20090928
  Receipt Date: 20090924
  Transmission Date: 20100115
  Serious: Yes (Other)
  Sender: FDA-Public Use
  Company Number: PHEH2009US02429

PATIENT
  Sex: Female

DRUGS (10)
  1. ZOMETA [Suspect]
     Indication: NEOPLASM MALIGNANT
     Dosage: UNK
     Dates: start: 20070501
  2. INSULIN [Concomitant]
  3. PAXIL [Concomitant]
  4. REGLAN [Concomitant]
  5. WELLBUTRIN [Concomitant]
  6. DECADRON                                /CAN/ [Concomitant]
  7. COUMADIN [Concomitant]
  8. HERCEPTIN [Concomitant]
  9. CHEMOTHERAPEUTICS NOS [Concomitant]
  10. RADIATION [Concomitant]

REACTIONS (48)
  - ABDOMINAL PAIN UPPER [None]
  - ANAEMIA [None]
  - ANHEDONIA [None]
  - ANXIETY [None]
  - BACK PAIN [None]
  - BLOOD PRESSURE ABNORMAL [None]
  - BODY TEMPERATURE INCREASED [None]
  - CONVULSION [None]
  - COUGH [None]
  - DEBRIDEMENT [None]
  - DEHYDRATION [None]
  - DIARRHOEA [None]
  - DIPLOPIA [None]
  - DISCOMFORT [None]
  - DIZZINESS [None]
  - EAR CONGESTION [None]
  - EATING DISORDER [None]
  - ECONOMIC PROBLEM [None]
  - EMOTIONAL DISTRESS [None]
  - EMPHYSEMA [None]
  - FALL [None]
  - FISTULA [None]
  - GAIT DISTURBANCE [None]
  - HEADACHE [None]
  - HYPOAESTHESIA [None]
  - HYPOPHAGIA [None]
  - HYPOTENSION [None]
  - INJURY [None]
  - LIFE EXPECTANCY SHORTENED [None]
  - LOOSE TOOTH [None]
  - MALNUTRITION [None]
  - MENTAL DISORDER [None]
  - METASTASES TO BONE [None]
  - METASTASES TO CENTRAL NERVOUS SYSTEM [None]
  - METASTASES TO LIVER [None]
  - OSTEONECROSIS [None]
  - PAIN [None]
  - PARAESTHESIA [None]
  - PERIODONTITIS [None]
  - PHYSICAL DISABILITY [None]
  - RADIOTHERAPY TO BRAIN [None]
  - SCAR [None]
  - SINUSITIS [None]
  - TOOTH DISORDER [None]
  - TOOTH FRACTURE [None]
  - TOOTH INFECTION [None]
  - UNEVALUABLE EVENT [None]
  - VISION BLURRED [None]
